FAERS Safety Report 25664171 (Version 1)
Quarter: 2025Q3

REPORT INFORMATION
  Report Type: Spontaneous
  Country: GB (occurrence: GB)
  Receive Date: 20250811
  Receipt Date: 20250811
  Transmission Date: 20251021
  Serious: Yes (Other)
  Sender: BAYER HEALTHCARE PHARMACEUTICALS INC.
  Company Number: GB-BAYER-2025A102295

PATIENT
  Age: 15 Year
  Sex: Female

DRUGS (1)
  1. INTERFERON BETA-1B [Suspect]
     Active Substance: INTERFERON BETA-1B
     Indication: Nasopharyngeal cancer
     Dosage: 22 ?G, TIW
     Route: 058

REACTIONS (4)
  - Retinopathy [Recovering/Resolving]
  - Acute macular neuroretinopathy [Recovering/Resolving]
  - Product use in unapproved indication [None]
  - Product prescribing error [None]
